FAERS Safety Report 7152488-3 (Version None)
Quarter: 2010Q4

REPORT INFORMATION
  Report Type: 
  Country: None (occurrence: None)
  Receive Date: 20101213
  Receipt Date: 20101129
  Transmission Date: 20110411
  Serious: No
  Sender: FDA-Public Use
  Company Number: US-PFIZER INC-US-WYE-H17786810

PATIENT
  Age: 87 Year
  Sex: Female

DRUGS (2)
  1. PREMARIN [Suspect]
     Dosage: 1.25
     Route: 048
     Dates: start: 19630101
  2. MEDROXYPROGESTERONE ACETATE [Suspect]
     Dosage: 5 MG, UNK
     Route: 048
     Dates: start: 19630101

REACTIONS (1)
  - DRUG INEFFECTIVE [None]
